FAERS Safety Report 11810117 (Version 2)
Quarter: 2015Q4

REPORT INFORMATION
  Report Type: Spontaneous
  Country: GB (occurrence: GB)
  Receive Date: 20151208
  Receipt Date: 20151208
  Transmission Date: 20160305
  Serious: Yes (Hospitalization)
  Sender: FDA-Public Use
  Company Number: GB-WATSON-2015-26586

PATIENT
  Sex: Female

DRUGS (7)
  1. DULOXETINE (UNKNOWN) [Suspect]
     Active Substance: DULOXETINE
     Dosage: 40 MG, BID
     Route: 048
     Dates: start: 20150702, end: 20151010
  2. SENNA                              /00142201/ [Concomitant]
     Active Substance: SENNA LEAF
     Indication: CONSTIPATION
     Dosage: 2 DF, PRN
     Route: 048
  3. SIMVASTATIN. [Concomitant]
     Active Substance: SIMVASTATIN
     Indication: PRODUCT USED FOR UNKNOWN INDICATION
     Dosage: 40 MG, UNKNOWN
     Route: 048
     Dates: start: 2006
  4. OMEPRAZOLE (UNKNOWN) [Suspect]
     Active Substance: OMEPRAZOLE
     Indication: GASTROOESOPHAGEAL REFLUX DISEASE
     Dosage: 40 MG, DAILY
     Route: 048
     Dates: start: 1999, end: 20151020
  5. DULOXETINE (UNKNOWN) [Suspect]
     Active Substance: DULOXETINE
     Indication: ANXIETY
     Dosage: 30 MG, DAILY
     Route: 048
     Dates: start: 20151010, end: 20151101
  6. THYROXINE [Concomitant]
     Active Substance: LEVOTHYROXINE
     Indication: HYPOTHYROIDISM
     Dosage: UNK UNK, UNKNOWN (100/ 75 ALTERNATE)
     Route: 048
  7. LOSARTAN. [Concomitant]
     Active Substance: LOSARTAN
     Indication: HYPERTENSION
     Dosage: 75 MG, DAILY
     Route: 048
     Dates: start: 2008

REACTIONS (3)
  - Diarrhoea [Recovered/Resolved]
  - Confusional state [Recovered/Resolved]
  - Hyponatraemia [Recovered/Resolved]
